FAERS Safety Report 8493140 (Version 6)
Quarter: 2013Q4

REPORT INFORMATION
  Report Type: Report from Study
  Country: JP (occurrence: JP)
  Receive Date: 20120404
  Receipt Date: 20131227
  Transmission Date: 20140711
  Serious: Yes (Hospitalization)
  Sender: FDA-Public Use
  Company Number: JP-UCBSA-054295

PATIENT
  Age: 39 Year
  Sex: Female

DRUGS (20)
  1. PLACEBO [Suspect]
     Indication: RHEUMATOID ARTHRITIS
     Route: 058
     Dates: start: 20111115, end: 20120322
  2. RHEUMATREX [Suspect]
     Indication: RHEUMATOID ARTHRITIS
     Route: 048
     Dates: start: 20120111, end: 201203
  3. RHEUMATREX [Suspect]
     Indication: RHEUMATOID ARTHRITIS
     Route: 048
     Dates: start: 20111228, end: 201201
  4. RHEUMATREX [Suspect]
     Indication: RHEUMATOID ARTHRITIS
     Route: 048
     Dates: start: 20111214, end: 201112
  5. RHEUMATREX [Suspect]
     Indication: RHEUMATOID ARTHRITIS
     Route: 048
     Dates: start: 20111130, end: 201112
  6. RHEUMATREX [Suspect]
     Indication: RHEUMATOID ARTHRITIS
     Route: 048
     Dates: start: 20111116, end: 201111
  7. FOLIC ACID [Concomitant]
     Dates: start: 20111230
  8. PREDNISOLONE [Concomitant]
     Dosage: DAILY DOSE: 5 MG
     Dates: start: 20120209, end: 2012
  9. PREDNISOLONE [Concomitant]
     Dosage: 60 MG DAILY
     Dates: start: 20120325, end: 201203
  10. PREDNISOLONE [Concomitant]
     Dosage: 40 MG DAILY
     Dates: start: 20120330, end: 2012
  11. PREDNISOLONE [Concomitant]
     Dosage: 30 MG DAILY
     Dates: start: 20120406, end: 201204
  12. PREDNISOLONE [Concomitant]
     Dosage: 25 MG DAILY
     Dates: start: 20120418, end: 2012
  13. PREDNISOLONE [Concomitant]
     Dosage: 20 MG DAILY
     Dates: start: 20120501, end: 201205
  14. PREDNISOLONE [Concomitant]
     Dosage: 15 MG DAILY
     Dates: start: 20120515, end: 2012
  15. PREDNISOLONE [Concomitant]
     Dosage: 12.5 MG DAILY
     Dates: start: 20120605
  16. LOXOPROFEN SODIUM HYDRATE [Concomitant]
     Dosage: DAILY DOSE: 120 MG
     Dates: start: 20120110
  17. TEPRENONE [Concomitant]
     Dosage: DAILY DOSE: 100 MG
     Dates: start: 20120110
  18. LANSOPRAZOLE [Concomitant]
     Dosage: DAILY DOSE: 15 MG
     Dates: start: 20111129
  19. LEVOTHYROXINE SODIUM HYDRATE [Concomitant]
     Dosage: DAILY DOSE:100 MCG
     Dates: start: 20110131
  20. ALFACALCIDOL [Concomitant]
     Dosage: DAILY DOSE: 1 MCG
     Dates: start: 20111228

REACTIONS (1)
  - Interstitial lung disease [Recovered/Resolved]
